FAERS Safety Report 8293788-3 (Version None)
Quarter: 2012Q2

REPORT INFORMATION
  Report Type: 
  Country: None (occurrence: None)
  Receive Date: 20120413
  Receipt Date: 20120411
  Transmission Date: 20120825
  Serious: Yes (Other)
  Sender: FDA-Public Use
  Company Number: ADR-2011-11447

PATIENT
  Sex: Female

DRUGS (1)
  1. BACLOFEN [Suspect]
     Indication: MUSCLE SPASTICITY

REACTIONS (4)
  - THERAPEUTIC RESPONSE DECREASED [None]
  - CONTUSION [None]
  - ELECTRIC SHOCK [None]
  - DEVICE ELECTRICAL IMPEDANCE ISSUE [None]
